FAERS Safety Report 10254587 (Version 1)
Quarter: 2014Q2

REPORT INFORMATION
  Report Type: Spontaneous
  Country: US (occurrence: None)
  Receive Date: 20140620
  Receipt Date: 20140620
  Transmission Date: 20141212
  Serious: Yes (Other)
  Sender: FDA-Public Use
  Company Number: None

PATIENT
  Sex: Male

DRUGS (1)
  1. SPRYCEL [Suspect]
     Indication: PROSTATE CANCER
     Route: 048
     Dates: start: 20140529

REACTIONS (2)
  - Dyspnoea [None]
  - Fatigue [None]
